FAERS Safety Report 12983194 (Version 1)
Quarter: 2016Q4

REPORT INFORMATION
  Report Type: Spontaneous
  Country: US (occurrence: US)
  Receive Date: 20161129
  Receipt Date: 20161129
  Transmission Date: 20170207
  Serious: No
  Sender: FDA-Public Use
  Company Number: None

PATIENT
  Age: 8 Year
  Sex: Female
  Weight: 37.68 kg

DRUGS (1)
  1. IBUPROFEN 100MG/5ML [Suspect]
     Active Substance: IBUPROFEN
     Route: 048

REACTIONS (4)
  - Drug dispensing error [None]
  - Prescribed overdose [None]
  - Drug prescribing error [None]
  - Incorrect dose administered [None]
